FAERS Safety Report 21718633 (Version 2)
Quarter: 2022Q4

REPORT INFORMATION
  Report Type: Report from Study
  Country: US (occurrence: US)
  Receive Date: 20221213
  Receipt Date: 20221214
  Transmission Date: 20230113
  Serious: No
  Sender: FDA-Public Use
  Company Number: US-ABBVIE-4227010

PATIENT
  Age: 77 Year
  Sex: Female

DRUGS (2)
  1. DUOPA [Suspect]
     Active Substance: CARBIDOPA\LEVODOPA
     Indication: Product used for unknown indication
     Route: 050
     Dates: start: 20221102
  2. DUOPA [Suspect]
     Active Substance: CARBIDOPA\LEVODOPA

REACTIONS (11)
  - Dyskinesia [Not Recovered/Not Resolved]
  - Dysphagia [Unknown]
  - Tremor [Not Recovered/Not Resolved]
  - Drug ineffective [Unknown]
  - Device issue [Not Recovered/Not Resolved]
  - Hypoaesthesia [Unknown]
  - Joint range of motion decreased [Unknown]
  - Dysstasia [Unknown]
  - Pain [Unknown]
  - Mobility decreased [Unknown]
  - Condition aggravated [Unknown]

NARRATIVE: CASE EVENT DATE: 20221001
